FAERS Safety Report 10033052 (Version 3)
Quarter: 2014Q2

REPORT INFORMATION
  Report Type: Spontaneous
  Country: JP (occurrence: JP)
  Receive Date: 20140324
  Receipt Date: 20140414
  Transmission Date: 20141212
  Serious: Yes (Death, Other)
  Sender: FDA-Public Use
  Company Number: JP-OTSUKA-JP-2014-12542

PATIENT
  Age: 43 Year
  Sex: Male

DRUGS (5)
  1. BUSULFEX [Suspect]
     Indication: NON-HODGKIN^S LYMPHOMA
     Dosage: 3.2 MG/KG, DAILY DOSE
     Route: 042
  2. FLUDARABINE [Concomitant]
     Dosage: 30 MG/M2, DAILY DOSE
     Route: 065
  3. MELPHALAN [Concomitant]
     Dosage: 70 MG/M2, DAILY DOSE
     Route: 065
  4. ATG [Concomitant]
     Dosage: 2.5 MG/KG, DAILY DOSE
     Route: 065
  5. ETOPOSIDE [Concomitant]
     Dosage: 30 MG/KG, DAILY DOSE
     Route: 065

REACTIONS (2)
  - Non-Hodgkin^s lymphoma [Fatal]
  - Cytomegalovirus test positive [Recovering/Resolving]
